FAERS Safety Report 5319726-0 (Version None)
Quarter: 2007Q2

REPORT INFORMATION
  Report Type: 
  Country: None (occurrence: None)
  Receive Date: 20070503
  Receipt Date: 20070425
  Transmission Date: 20071010
  Serious: Yes (Other)
  Sender: FDA-Public Use
  Company Number: 2007SP007869

PATIENT
  Age: 41 Year
  Sex: Male

DRUGS (2)
  1. VIRAFERONPEG (PEGINTERFERON ALFA-2B) (PEGINTERERON ALFA-2B) [Suspect]
     Indication: HEPATITIS C
     Dosage: 100 MG
     Dates: end: 20070420
  2. REBETOL [Suspect]
     Indication: HEPATITIS C
     Dosage: 1000 MG
     Dates: start: 20070420

REACTIONS (1)
  - DYSURIA [None]
